FAERS Safety Report 19520816 (Version 1)
Quarter: 2021Q3

REPORT INFORMATION
  Report Type: Spontaneous
  Country: DE (occurrence: DE)
  Receive Date: 20210712
  Receipt Date: 20210712
  Transmission Date: 20211014
  Serious: Yes (Hospitalization)
  Sender: FDA-Public Use
  Company Number: DE-OSMOTICA_PHARMACEUTICAL_US_LLC-POI0573202100265

PATIENT
  Age: 58 Year
  Sex: Female
  Weight: 80 kg

DRUGS (1)
  1. DIVIGEL [Suspect]
     Active Substance: ESTRADIOL
     Indication: PRODUCT USED FOR UNKNOWN INDICATION
     Dosage: UNKNOWN
     Route: 065

REACTIONS (2)
  - Pulmonary embolism [Unknown]
  - Dyspnoea [Unknown]

NARRATIVE: CASE EVENT DATE: 2020
